FAERS Safety Report 7748474-2 (Version None)
Quarter: 2011Q3

REPORT INFORMATION
  Report Type: 
  Country: None (occurrence: None)
  Receive Date: 20110914
  Receipt Date: 20110906
  Transmission Date: 20111222
  Serious: Yes (Hospitalization, Other)
  Sender: FDA-Public Use
  Company Number: US-BIOGENIDEC-2011BI031546

PATIENT
  Age: 54 Year
  Sex: Female

DRUGS (1)
  1. AVONEX [Suspect]
     Indication: MULTIPLE SCLEROSIS
     Route: 030

REACTIONS (7)
  - GRAND MAL CONVULSION [None]
  - MOBILITY DECREASED [None]
  - RESPIRATORY ARREST [None]
  - BLOOD TEST ABNORMAL [None]
  - STAPHYLOCOCCAL INFECTION [None]
  - PETIT MAL EPILEPSY [None]
  - SEPSIS [None]
